FAERS Safety Report 9454771 (Version 2)
Quarter: 2013Q4

REPORT INFORMATION
  Report Type: Spontaneous
  Country: IT (occurrence: IT)
  Receive Date: 20130812
  Receipt Date: 20131009
  Transmission Date: 20140711
  Serious: Yes (Hospitalization, Other)
  Sender: FDA-Public Use
  Company Number: IT-ELI_LILLY_AND_COMPANY-IT201308000096

PATIENT
  Age: 71 Year
  Sex: Male

DRUGS (2)
  1. INSULIN HUMAN [Suspect]
     Indication: TYPE 2 DIABETES MELLITUS
     Dosage: 60 IU, QD
     Dates: start: 20130101, end: 20130708
  2. PROZIN                             /00011902/ [Concomitant]
     Indication: HICCUPS
     Dosage: 1 DF, UNKNOWN

REACTIONS (1)
  - Hypoglycaemia [Recovering/Resolving]
